FAERS Safety Report 5728925-5 (Version None)
Quarter: 2008Q2

REPORT INFORMATION
  Report Type: 
  Country: None (occurrence: None)
  Receive Date: 20080506
  Receipt Date: 20080422
  Transmission Date: 20081010
  Serious: Yes (Other)
  Sender: FDA-Public Use
  Company Number: US-BAYER-200811612BCC

PATIENT
  Sex: Female

DRUGS (1)
  1. BACTINE PAIN RELIEVE CLEANSING SPRAY [Suspect]
     Indication: COSMETIC BODY PIERCING
     Route: 061

REACTIONS (1)
  - BREAST CANCER FEMALE [None]
